FAERS Safety Report 7810271-7 (Version None)
Quarter: 2011Q4

REPORT INFORMATION
  Report Type: 
  Country: None (occurrence: None)
  Receive Date: 20111012
  Receipt Date: 20111005
  Transmission Date: 20120403
  Serious: Yes (Death, Other)
  Sender: FDA-Public Use
  Company Number: KR-CELGENEUS-286-CCAZA-11100638

PATIENT

DRUGS (4)
  1. AZACITIDINE [Suspect]
     Dosage: 75 MILLIGRAM/SQ. METER
     Route: 058
  2. CYTARABINE [Concomitant]
     Dosage: 20 MILLIGRAM/SQ. METER
     Route: 041
  3. FLUCONAZOLE [Concomitant]
     Dosage: 100 MILLIGRAM
     Route: 065
  4. CIPROFLOXACIN [Concomitant]
     Dosage: 1000 MILLIGRAM
     Route: 065

REACTIONS (10)
  - SEPSIS [None]
  - NEUTROPENIA [None]
  - ANAEMIA [None]
  - LEUKOPENIA [None]
  - THROMBOCYTOPENIA [None]
  - RASH [None]
  - NAUSEA [None]
  - REFRACTORY ANAEMIA WITH AN EXCESS OF BLASTS [None]
  - INFECTION [None]
  - ACUTE MYELOID LEUKAEMIA [None]
